FAERS Safety Report 18259708 (Version 2)
Quarter: 2020Q3

REPORT INFORMATION
  Report Type: Spontaneous
  Country: DE (occurrence: DE)
  Receive Date: 20200912
  Receipt Date: 20200917
  Transmission Date: 20201103
  Serious: No
  Sender: FDA-Public Use
  Company Number: DE-AMGEN-DEUSP2020146899

PATIENT
  Sex: Male

DRUGS (7)
  1. CYCLOSPORINE. [Concomitant]
     Active Substance: CYCLOSPORINE
     Indication: LICHEN PLANUS
  2. MYCOPHENOLATE MOFETIL. [Concomitant]
     Active Substance: MYCOPHENOLATE MOFETIL
     Indication: LICHEN PLANUS
     Dosage: UNK
  3. AZATHIOPRINE. [Concomitant]
     Active Substance: AZATHIOPRINE
     Indication: LICHEN PLANUS
     Dosage: UNK
  4. METHOTREXATE. [Concomitant]
     Active Substance: METHOTREXATE
     Indication: LICHEN PLANUS
     Dosage: UNK
  5. GUSELKUMAB [Concomitant]
     Active Substance: GUSELKUMAB
     Indication: LICHEN PLANUS
  6. APREMILAST [Suspect]
     Active Substance: APREMILAST
     Indication: LICHEN PLANUS
     Dosage: UNK
     Route: 065
  7. IXEKIZUMAB [Concomitant]
     Active Substance: IXEKIZUMAB
     Indication: LICHEN PLANUS
     Dosage: UNK

REACTIONS (2)
  - Drug ineffective for unapproved indication [Unknown]
  - Off label use [Unknown]
